FAERS Safety Report 24850683 (Version 1)
Quarter: 2025Q1

REPORT INFORMATION
  Report Type: Spontaneous
  Country: US (occurrence: US)
  Receive Date: 20250116
  Receipt Date: 20250116
  Transmission Date: 20250409
  Serious: No
  Sender: SK LIFE SCIENCE
  Company Number: US-SK LIFE SCIENCE, INC-SKPVG-2024-000344

PATIENT

DRUGS (5)
  1. XCOPRI [Suspect]
     Active Substance: CENOBAMATE
     Indication: Epilepsy
     Route: 048
     Dates: start: 20231229
  2. XCOPRI [Suspect]
     Active Substance: CENOBAMATE
     Indication: Epilepsy
     Dosage: 50 MILLIGRAM, QD
     Route: 048
  3. XCOPRI [Suspect]
     Active Substance: CENOBAMATE
     Dosage: 100 MILLIGRAM, QD
     Route: 048
  4. XCOPRI [Suspect]
     Active Substance: CENOBAMATE
     Dosage: 50MG, TAKING FOUR 12.5MG^S, OR TWO 25MG TABLETS TO EQUAL 50MG,  ONCE DAILY, AT NIGHT
     Route: 048
     Dates: end: 20240310
  5. XCOPRI [Suspect]
     Active Substance: CENOBAMATE
     Dosage: 50 MILLIGRAM, ONCE A DAY, AT NIGHT
     Route: 048
     Dates: end: 20240907

REACTIONS (7)
  - Product dose omission issue [Not Recovered/Not Resolved]
  - Aura [Not Recovered/Not Resolved]
  - Loss of personal independence in daily activities [Unknown]
  - Product use issue [Recovered/Resolved]
  - Somnolence [Unknown]
  - Fatigue [Recovering/Resolving]
  - Somnolence [Unknown]

NARRATIVE: CASE EVENT DATE: 20240310
